FAERS Safety Report 8667671 (Version 2)
Quarter: 2013Q3

REPORT INFORMATION
  Report Type: Report from Study
  Country: CA (occurrence: CA)
  Receive Date: 20120717
  Receipt Date: 20130828
  Transmission Date: 20140515
  Serious: Yes (Other)
  Sender: FDA-Public Use
  Company Number: CA-JNJFOC-20120704095

PATIENT
  Age: 31 Year
  Sex: Female
  Weight: 83.8 kg

DRUGS (10)
  1. REMICADE [Suspect]
     Indication: CROHN^S DISEASE
     Route: 042
     Dates: start: 20110819
  2. REMICADE [Suspect]
     Indication: CROHN^S DISEASE
     Route: 042
     Dates: start: 20120620
  3. REMICADE [Suspect]
     Indication: CROHN^S DISEASE
     Route: 042
     Dates: start: 20110811
  4. METHOTREXATE [Concomitant]
     Route: 058
  5. METHOTREXATE [Concomitant]
     Route: 058
     Dates: start: 20120620
  6. METHOTREXATE [Concomitant]
     Route: 058
  7. ADVAIR [Concomitant]
     Route: 065
  8. SUMATRIPTAN [Concomitant]
     Route: 065
  9. CITALOPRAM [Concomitant]
     Route: 065
  10. FOLIC ACID [Concomitant]
     Route: 065

REACTIONS (2)
  - Fistula [Not Recovered/Not Resolved]
  - Oral herpes [Not Recovered/Not Resolved]
